FAERS Safety Report 7880720-7 (Version None)
Quarter: 2011Q4

REPORT INFORMATION
  Report Type: 
  Country: None (occurrence: None)
  Receive Date: 20111101
  Receipt Date: 20111024
  Transmission Date: 20120403
  Serious: Yes (Other)
  Sender: FDA-Public Use
  Company Number: SA-BAYER-2011-104678

PATIENT
  Sex: Female

DRUGS (4)
  1. SOTALOL HCL [Suspect]
     Dosage: WEANED GRADUALLY AT 36 WEEKS OF GESTATION
     Route: 048
  2. SOTALOL HCL [Suspect]
     Indication: TACHYCARDIA FOETAL
     Dosage: 80 MG, BID
     Route: 048
  3. SOTALOL HCL [Suspect]
     Dosage: 160 MG, TID
     Route: 048
  4. SOTALOL HCL [Suspect]
     Dosage: 160 MG, BID, AT 27 WEEKS OF GESTATION
     Route: 048

REACTIONS (3)
  - SUPRAVENTRICULAR TACHYCARDIA [None]
  - FATIGUE [None]
  - DIZZINESS [None]
